FAERS Safety Report 10689545 (Version 5)
Quarter: 2015Q4

REPORT INFORMATION
  Report Type: Spontaneous
  Country: US (occurrence: US)
  Receive Date: 20150105
  Receipt Date: 20151222
  Transmission Date: 20160304
  Serious: Yes (Hospitalization, Other)
  Sender: FDA-Public Use
  Company Number: US-PFIZER INC-2014359210

PATIENT
  Age: 66 Year
  Sex: Female
  Weight: 53.61 kg

DRUGS (38)
  1. REVATIO [Suspect]
     Active Substance: SILDENAFIL CITRATE
     Dosage: 20 MG, TID AS DIRECTED
     Route: 048
     Dates: start: 2007
  2. LASIX [Concomitant]
     Active Substance: FUROSEMIDE
     Dosage: 20 MG, TAKE 2 TABLETS BY MOUTH EVERY MORNING, 2 TABLETS AT MID-DAY AND EVERY EVENING
     Route: 048
  3. PLAVIX [Concomitant]
     Active Substance: CLOPIDOGREL BISULFATE
     Dosage: 75 MG, DAILY
     Route: 048
     Dates: start: 20150601
  4. FOLIC ACID. [Concomitant]
     Active Substance: FOLIC ACID
     Dosage: 800 ?G, DAILY
     Route: 048
  5. ALDACTONE [Concomitant]
     Active Substance: SPIRONOLACTONE
     Dosage: 25 MG, DAILY
     Route: 048
  6. VENTAVIS [Concomitant]
     Active Substance: ILOPROST
     Dosage: 20 MEQ, 3X/DAY
  7. REGLAN [Concomitant]
     Active Substance: METOCLOPRAMIDE HYDROCHLORIDE
     Dosage: 5 MG, AS NEEDED, TAKE 1 TAB BY MOUTH EVERY 6 HOURS AS NEEDED
     Route: 048
     Dates: start: 20151005
  8. FOLIC ACID. [Concomitant]
     Active Substance: FOLIC ACID
     Dosage: 400 ?G, 2X/DAY
     Route: 048
  9. LETAIRIS [Concomitant]
     Active Substance: AMBRISENTAN
     Dosage: 10 MG, DAILY
     Route: 048
     Dates: start: 20150309
  10. VENTAVIS [Concomitant]
     Active Substance: ILOPROST
     Dosage: 20MCG/ML, TAKE 20 MEQ AS AN INHALATION EVERY 4 HOURS.
     Route: 055
  11. PERCOCET [Concomitant]
     Active Substance: ACETAMINOPHEN\OXYCODONE HYDROCHLORIDE
     Dosage: (OXYCODONE HYDROCHLORIDE 10 MG, PARACETAMOL325 MG)/ 0.5 TAB EVERY 4 HOURS
     Route: 048
  12. OXYGEN. [Concomitant]
     Active Substance: OXYGEN
     Dosage: 2L/MIN QHS AND PRN DAYTIME
  13. ANUSOL-HC [Concomitant]
     Indication: HAEMORRHOIDS
     Dosage: 25MG 2X/DAY AS NEEDED
     Route: 054
     Dates: start: 20150703
  14. REVATIO [Suspect]
     Active Substance: SILDENAFIL CITRATE
     Indication: PULMONARY ARTERIAL HYPERTENSION
     Dosage: 20 MG, 2-3 TIMES DAILY
     Dates: start: 2005
  15. PATANOL [Concomitant]
     Active Substance: OLOPATADINE HYDROCHLORIDE
     Dosage: 1 GTT, 2X/DAY
  16. TRADJENTA [Concomitant]
     Active Substance: LINAGLIPTIN
     Dosage: 5 MG, DAILY
     Route: 048
     Dates: end: 201503
  17. VALIUM [Concomitant]
     Active Substance: DIAZEPAM
     Dosage: 10 MG, AS NEEDED, TWICE DAILY
     Route: 048
     Dates: end: 201504
  18. KLOR-CON [Concomitant]
     Active Substance: POTASSIUM CHLORIDE
     Dosage: 100 MEQ, DAILY
     Route: 048
  19. CARTIA XT [Concomitant]
     Active Substance: DILTIAZEM HYDROCHLORIDE
     Dosage: 120 MG, DAILY (24HR-CAP)
     Route: 048
     Dates: start: 20150707
  20. HYDRODIURIL [Concomitant]
     Active Substance: HYDROCHLOROTHIAZIDE
     Dosage: 50 MG, DAILY (SELDOM)
     Route: 048
     Dates: start: 20151005
  21. ASPIRIN. [Concomitant]
     Active Substance: ASPIRIN
     Dosage: 81 MG, DAILY
     Route: 048
  22. COLACE [Concomitant]
     Active Substance: DOCUSATE SODIUM
     Dosage: 100 MG, 2X/DAY
     Route: 048
     Dates: start: 20150703
  23. KLOR-CON [Concomitant]
     Active Substance: POTASSIUM CHLORIDE
     Dosage: 10 MEQ, DAILY
     Route: 048
     Dates: start: 20151022
  24. DIGOX [Concomitant]
     Active Substance: DIGOXIN
     Dosage: 0.125 MG, DAILY
     Route: 048
  25. RESTORIL [Concomitant]
     Active Substance: TEMAZEPAM
     Dosage: 15 MG, AS NEEDED, TAKE 1 CAPSULE BY MOUTH AT BEDTIME AS NEEDED
     Dates: start: 20151005
  26. TRULICITY [Concomitant]
     Active Substance: DULAGLUTIDE
     Dosage: 0.75MG10.5ML PREFILLED PEN ADMINISTER 0.5 WEEKLY
     Route: 058
  27. PERCOCET [Concomitant]
     Active Substance: ACETAMINOPHEN\OXYCODONE HYDROCHLORIDE
     Dosage: 7.5MG/325MG, TAKE 1 TAB BY MOUTH EVERY 4 TO 6 (HOURS AS NEEDED)
     Route: 048
  28. PROTONIX [Concomitant]
     Active Substance: PANTOPRAZOLE SODIUM
     Dosage: 40 MG, DAILY, TAKE 1 TABLET EVERY DAY
     Route: 048
     Dates: start: 20151005
  29. XANAX [Concomitant]
     Active Substance: ALPRAZOLAM
     Dosage: 0.5 MG, AS NEEDED, 1 TABLET BY MOUTH EVERY 6 HOURS
     Route: 048
     Dates: start: 20151006
  30. WELLBUTRIN SR [Concomitant]
     Active Substance: BUPROPION HYDROCHLORIDE
     Dosage: 150 MG, AS NEEDED, TWICE DAILY AT BED TIME
  31. WELLBUTRIN SR [Concomitant]
     Active Substance: BUPROPION HYDROCHLORIDE
     Dosage: 150 MG, AS NEEDED, TWICE DAILY AT BED TIME
     Route: 048
  32. HYDROQUINONE. [Concomitant]
     Active Substance: HYDROQUINONE
     Dosage: 4 %, 2X/DAY, 1 APPLICATION TO AFFECTED AREA(S) TWICE DAILY
  33. ELOCON [Concomitant]
     Active Substance: MOMETASONE FUROATE
     Dosage: 0.1 %, USE DAILY OR BID (SELDOM)
     Route: 061
  34. FISH OIL [Concomitant]
     Active Substance: FISH OIL
     Dosage: 1000 MG, DAILY
     Route: 048
  35. REVATIO [Suspect]
     Active Substance: SILDENAFIL CITRATE
     Dosage: 40 MG, 3X/DAY (20 MG 2 TABS)
     Route: 048
     Dates: start: 20150318
  36. ULTRAM [Concomitant]
     Active Substance: TRAMADOL HYDROCHLORIDE
     Dosage: 50 MG, AS NEEDED, EVERY  8 HOURS AS NEEDED (VERY SELDOM)
     Dates: start: 20151005
  37. SPIRIVA [Concomitant]
     Active Substance: TIOTROPIUM BROMIDE MONOHYDRATE
     Dosage: 18 ?G, DAILY
     Route: 055
     Dates: start: 20150323
  38. SENOKOT [Concomitant]
     Active Substance: SENNOSIDES
     Dosage: 8.6 MG, DAILY
     Route: 048
     Dates: start: 20150703

REACTIONS (6)
  - Cough [Unknown]
  - Pulmonary hypertension [Unknown]
  - Memory impairment [Unknown]
  - Sneezing [Unknown]
  - Chest pain [Unknown]
  - Malaise [Unknown]
